FAERS Safety Report 17716928 (Version 1)
Quarter: 2020Q2

REPORT INFORMATION
  Report Type: Report from Study
  Country: IT (occurrence: IT)
  Receive Date: 20200428
  Receipt Date: 20200428
  Transmission Date: 20200714
  Serious: Yes (Hospitalization, Other)
  Sender: FDA-Public Use
  Company Number: IT-BRISTOL-MYERS SQUIBB COMPANY-BMS-2020-033111

PATIENT
  Age: 78 Year
  Sex: Female

DRUGS (10)
  1. OMEPRAZEN [OMEPRAZOLE] [Concomitant]
     Active Substance: OMEPRAZOLE
     Indication: PROPHYLAXIS
     Dosage: 20 MILLIGRAM
     Route: 048
  2. LUVION [CANRENONE] [Concomitant]
     Active Substance: CANRENONE
     Indication: CHRONIC KIDNEY DISEASE
     Dosage: 1 AGU/ML
     Route: 048
  3. LASIX [Concomitant]
     Active Substance: FUROSEMIDE
     Indication: CHRONIC KIDNEY DISEASE
     Dosage: 150 MILLIGRAM
     Route: 048
  4. ZYLORIC [Concomitant]
     Active Substance: ALLOPURINOL
     Indication: HYPERURICAEMIA
     Dosage: 150 MILLIGRAM
     Route: 048
  5. BINOCRIT [Concomitant]
     Active Substance: ERYTHROPOIETIN
     Indication: MICROCYTIC ANAEMIA
     Dosage: 4000 KILO-INTERNATIONAL UNIT
     Route: 058
  6. LAEVOLAC [Concomitant]
     Active Substance: LACTULOSE
     Indication: ASTRINGENT THERAPY
     Dosage: 2 AGU/ML
     Route: 048
  7. TARDYFER [Concomitant]
     Active Substance: FERROUS SULFATE
     Indication: ANAEMIA
     Dosage: 1 AGU/ML
     Route: 048
  8. WARFARIN SODIUM. [Suspect]
     Active Substance: WARFARIN SODIUM
     Indication: ATRIAL FIBRILLATION
     Dosage: 1 DOSAGE FORM, AS NECESSARY
     Route: 048
  9. SPIRIVA [Concomitant]
     Active Substance: TIOTROPIUM BROMIDE MONOHYDRATE
     Indication: ASTHMA
     Dosage: 1 AGU/ML
     Route: 055
  10. ROCALTROL [Concomitant]
     Active Substance: CALCITRIOL
     Indication: VITAMIN D DEFICIENCY
     Dosage: 1 AGU/ML
     Route: 048

REACTIONS (5)
  - Anaemia [Recovering/Resolving]
  - Discharge [Recovering/Resolving]
  - Gastrointestinal haemorrhage [Recovering/Resolving]
  - Nausea [Recovering/Resolving]
  - Abdominal pain upper [Recovering/Resolving]

NARRATIVE: CASE EVENT DATE: 20200128
